FAERS Safety Report 9990197 (Version 1)
Quarter: 2014Q1

REPORT INFORMATION
  Report Type: Spontaneous
  Country: US (occurrence: None)
  Receive Date: 20140123
  Receipt Date: 20140123
  Transmission Date: 20141002
  Serious: Yes (Hospitalization)
  Sender: FDA-Public Use
  Company Number: UTC-037175

PATIENT
  Age: 62 Year
  Sex: Female

DRUGS (2)
  1. REMODULIN [Suspect]
     Indication: PULMONARY ARTERIAL HYPERTENSION
     Dosage: 112.32 UG/KG (0.078 UG/KG, 1 IN 1 MIN)
     Route: 058
     Dates: start: 20090413
  2. TRACLEER (BOSENTAN) [Concomitant]

REACTIONS (5)
  - Hypotension [None]
  - Infusion site reaction [None]
  - Hyperhidrosis [None]
  - Drug dose omission [None]
  - Dizziness [None]
